FAERS Safety Report 17718102 (Version 1)
Quarter: 2020Q2

REPORT INFORMATION
  Report Type: Spontaneous
  Country: US (occurrence: US)
  Receive Date: 20200428
  Receipt Date: 20200428
  Transmission Date: 20200714
  Serious: No
  Sender: FDA-Public Use
  Company Number: None

PATIENT
  Age: 72 Year
  Sex: Male
  Weight: 108 kg

DRUGS (1)
  1. DULAGLUTIDE (DULAGLUTIDE 0.75MG/0.5ML INJ, SOLN PEN) [Suspect]
     Active Substance: DULAGLUTIDE
     Indication: DIABETES MELLITUS
     Route: 058
     Dates: start: 20190510, end: 20190807

REACTIONS (5)
  - Nausea [None]
  - Diarrhoea [None]
  - Therapy interrupted [None]
  - Vomiting [None]
  - Abdominal pain [None]

NARRATIVE: CASE EVENT DATE: 20190807
